FAERS Safety Report 8560918-5 (Version None)
Quarter: 2012Q3

REPORT INFORMATION
  Report Type: 
  Country: None (occurrence: None)
  Receive Date: 20120802
  Receipt Date: 20120726
  Transmission Date: 20120928
  Serious: Yes (Hospitalization, Other)
  Sender: FDA-Public Use
  Company Number: JP-VERTEX PHARMACEUTICALS INC.-AE-2012-006307

PATIENT
  Age: 50 Year
  Sex: Male

DRUGS (24)
  1. RIKKUNSHI-TO [Concomitant]
     Route: 048
     Dates: start: 20120216
  2. TELAVIC (TELAPREVIR) [Suspect]
     Indication: HEPATITIS C
     Route: 048
     Dates: start: 20120126, end: 20120205
  3. TELAVIC (TELAPREVIR) [Suspect]
     Route: 048
     Dates: start: 20120410, end: 20120412
  4. CONIEL [Concomitant]
     Route: 048
  5. TELAVIC (TELAPREVIR) [Suspect]
     Route: 048
     Dates: start: 20120223
  6. TELAVIC (TELAPREVIR) [Suspect]
     Route: 048
     Dates: start: 20120405, end: 20120407
  7. REBETOL [Concomitant]
     Route: 048
     Dates: start: 20120410, end: 20120415
  8. OLMESARTAN MEDOXOMIL [Concomitant]
     Route: 048
  9. CONIEL [Concomitant]
     Route: 048
     Dates: start: 20120418
  10. LOXONIN [Concomitant]
     Route: 048
  11. PREDONINE [Concomitant]
     Route: 048
     Dates: start: 20120508, end: 20120510
  12. SEDEKOPAN [Concomitant]
     Route: 048
     Dates: start: 20120308
  13. TELAVIC (TELAPREVIR) [Suspect]
     Route: 048
     Dates: start: 20120206, end: 20120222
  14. REBETOL [Concomitant]
     Route: 048
     Dates: start: 20120329, end: 20120407
  15. GASMOTIN [Concomitant]
     Route: 048
     Dates: start: 20120127
  16. PREDONINE [Concomitant]
     Route: 048
     Dates: end: 20120430
  17. PREDONINE [Concomitant]
     Route: 048
     Dates: start: 20120501, end: 20120507
  18. REBETOL [Concomitant]
     Indication: HEPATITIS C
     Route: 048
     Dates: start: 20120126, end: 20120222
  19. TELAVIC (TELAPREVIR) [Suspect]
     Route: 048
     Dates: start: 20120414, end: 20120418
  20. REBETOL [Concomitant]
     Route: 048
     Dates: start: 20120223, end: 20120328
  21. REBETOL [Concomitant]
     Route: 048
     Dates: start: 20120416, end: 20120509
  22. TELAVIC (TELAPREVIR) [Suspect]
     Route: 048
     Dates: end: 20120404
  23. REBETOL [Concomitant]
     Route: 048
     Dates: start: 20120510, end: 20120712
  24. PEG-INTRON [Concomitant]
     Indication: HEPATITIS C
     Route: 058
     Dates: start: 20120126, end: 20120712

REACTIONS (2)
  - HAEMOGLOBIN DECREASED [None]
  - RENAL IMPAIRMENT [None]
